FAERS Safety Report 5715375-0 (Version None)
Quarter: 2008Q2

REPORT INFORMATION
  Report Type: 
  Country: None (occurrence: None)
  Receive Date: 20080422
  Receipt Date: 20080401
  Transmission Date: 20081010
  Serious: Yes (Hospitalization)
  Sender: FDA-Public Use
  Company Number: 20085027

PATIENT
  Age: 39 Year
  Sex: Female

DRUGS (3)
  1. LIORESAL [Suspect]
     Indication: MUSCLE SPASTICITY
     Dosage: UNK MCG, DAILY, INTRATHECAL
     Route: 037
  2. FLUDROCORTISONE ACETATE [Concomitant]
  3. NITROGLYCERIN [Concomitant]

REACTIONS (2)
  - GLOBAL AMNESIA [None]
  - URINARY INCONTINENCE [None]
